FAERS Safety Report 10055538 (Version 2)
Quarter: 2014Q2

REPORT INFORMATION
  Report Type: Report from Study
  Country: GB (occurrence: GB)
  Receive Date: 20140403
  Receipt Date: 20140403
  Transmission Date: 20141212
  Serious: Yes (Hospitalization)
  Sender: FDA-Public Use
  Company Number: GB-ROCHE-1133904

PATIENT
  Age: 65 Year
  Sex: Female
  Weight: 91.6 kg

DRUGS (8)
  1. OBINUTUZUMAB [Suspect]
     Indication: B-CELL LYMPHOMA
     Dosage: LAST DOSE PRIOR TO SAE ON 30/AUG/2012, 4 MG/ML
     Route: 042
     Dates: start: 20120830
  2. BENDAMUSTINE [Suspect]
     Indication: B-CELL LYMPHOMA
     Route: 042
     Dates: start: 20120831
  3. CLEXANE [Concomitant]
     Route: 065
     Dates: start: 20120711
  4. OMEPRAZOLE [Concomitant]
     Indication: HYPERCHLORHYDRIA
  5. CREON [Concomitant]
     Route: 065
     Dates: start: 200606
  6. METOCLOPRAMIDE [Concomitant]
     Route: 065
     Dates: start: 200606
  7. INSULIN [Concomitant]
     Indication: TYPE 1 DIABETES MELLITUS
     Route: 065
     Dates: start: 201201
  8. CO-CODAMOL [Concomitant]
     Indication: ANALGESIC THERAPY

REACTIONS (3)
  - Syncope [Recovered/Resolved]
  - Vomiting [Recovered/Resolved]
  - Infusion related reaction [Recovered/Resolved]
